FAERS Safety Report 6701219-7 (Version None)
Quarter: 2010Q2

REPORT INFORMATION
  Report Type: 
  Country: None (occurrence: None)
  Receive Date: 20100427
  Receipt Date: 20100420
  Transmission Date: 20101027
  Serious: Yes (Hospitalization)
  Sender: FDA-Public Use
  Company Number: 009557

PATIENT
  Age: 61 Year
  Sex: Male

DRUGS (3)
  1. PLETAL [Suspect]
     Indication: ARTERIOSCLEROSIS OBLITERANS
     Dosage: 50 MG, BID, ORAL
     Route: 048
     Dates: start: 20090124
  2. AGENTS FOR HYPERLIPIDEMIAS [Concomitant]
  3. CIBENOL (CIBENZOLINE SUCCINATE) [Concomitant]

REACTIONS (4)
  - GASTRIC ULCER HAEMORRHAGE [None]
  - HAEMATEMESIS [None]
  - METASTASES TO LIVER [None]
  - SMALL CELL LUNG CANCER STAGE UNSPECIFIED [None]
